FAERS Safety Report 8001886-4 (Version None)
Quarter: 2011Q4

REPORT INFORMATION
  Report Type: 
  Country: None (occurrence: None)
  Receive Date: 20111219
  Receipt Date: 20111205
  Transmission Date: 20120403
  Serious: Yes (Other)
  Sender: FDA-Public Use
  Company Number: 1000026206

PATIENT
  Sex: Female

DRUGS (2)
  1. ESCITALOPRAM OXALATE [Suspect]
     Dosage: ORAL
     Route: 048
  2. ESCITALOPRAM OXALATE [Suspect]
     Dosage: 0.3333 DOSAGE FORM (1 DOSAGE FORMS, 1 IN 3 D),ORAL
     Route: 048

REACTIONS (3)
  - PARAESTHESIA [None]
  - BURNING SENSATION [None]
  - INSOMNIA [None]
